FAERS Safety Report 8948732 (Version 2)
Quarter: 2013Q1

REPORT INFORMATION
  Report Type: Spontaneous
  Country: US (occurrence: US)
  Receive Date: 20121206
  Receipt Date: 20130225
  Transmission Date: 20140127
  Serious: Yes (Other)
  Sender: FDA-Public Use
  Company Number: US-BAYER-2012-126973

PATIENT
  Age: 26 Year
  Sex: Female
  Weight: 132.88 kg

DRUGS (1)
  1. MIRENA [Suspect]
     Indication: CONTRACEPTION
     Dosage: 20 MCG/24HR, CONT
     Route: 015
     Dates: start: 20110913, end: 20121128

REACTIONS (4)
  - Gestational diabetes [None]
  - Pregnancy with contraceptive device [Unknown]
  - Drug ineffective [None]
  - Device expulsion [None]
